FAERS Safety Report 5276800-5 (Version None)
Quarter: 2007Q1

REPORT INFORMATION
  Report Type: 
  Country: None (occurrence: None)
  Receive Date: 20070327
  Receipt Date: 20070322
  Transmission Date: 20070707
  Serious: Yes (Death)
  Sender: FDA-Public Use
  Company Number: MX-JNJFOC-20070305670

PATIENT
  Age: 70 Year
  Sex: Female
  Weight: 50 kg

DRUGS (5)
  1. ELENQUINE [Suspect]
     Indication: PNEUMONIA
     Route: 042
  2. SALBUTAMOL [Concomitant]
     Route: 065
  3. CHLORPHENIRAMINE MALEATE [Concomitant]
     Route: 065
  4. AMOXICILLIN [Concomitant]
     Route: 065
  5. THEOPHYLLINE [Concomitant]
     Route: 065

REACTIONS (4)
  - BRONCHOSPASM [None]
  - CYANOSIS [None]
  - PALLOR [None]
  - RESPIRATORY ARREST [None]
